FAERS Safety Report 9829299 (Version 1)
Quarter: 2014Q1

REPORT INFORMATION
  Report Type: Spontaneous
  Country: DE (occurrence: DE)
  Receive Date: 20140120
  Receipt Date: 20140120
  Transmission Date: 20141002
  Serious: Yes (Other)
  Sender: FDA-Public Use
  Company Number: DE-009507513-1401DEU006615

PATIENT
  Age: 17 Year
  Sex: Male

DRUGS (2)
  1. SINGULAIR 10 MG FILMTABLETTEN [Suspect]
     Indication: ASTHMA
     Dosage: UNK
     Route: 048
     Dates: end: 201309
  2. SINGULAIR 10 MG FILMTABLETTEN [Suspect]
     Dosage: ONE TABLET, ONCE
     Dates: start: 20140106, end: 20140106

REACTIONS (2)
  - Suicidal ideation [Not Recovered/Not Resolved]
  - Abnormal dreams [Not Recovered/Not Resolved]
